FAERS Safety Report 5087993-7 (Version None)
Quarter: 2006Q3

REPORT INFORMATION
  Report Type: 
  Country: None (occurrence: None)
  Receive Date: 20060727
  Receipt Date: 20060602
  Transmission Date: 20061208
  Serious: Yes (Other)
  Sender: FDA-Public Use
  Company Number: 2006058420

PATIENT
  Sex: Female

DRUGS (1)
  1. LYRICA [Suspect]
     Indication: ILL-DEFINED DISORDER
     Dosage: 50 MG (50 MG,1 IN 1 D)
     Dates: start: 20051026

REACTIONS (6)
  - CHILLS [None]
  - CHOKING [None]
  - COUGH [None]
  - DYSARTHRIA [None]
  - GAIT DISTURBANCE [None]
  - INSOMNIA [None]
